FAERS Safety Report 18921865 (Version 1)
Quarter: 2021Q1

REPORT INFORMATION
  Report Type: Spontaneous
  Country: US (occurrence: US)
  Receive Date: 20210219
  Receipt Date: 20210219
  Transmission Date: 20210420
  Serious: Yes (Other)
  Sender: FDA-Public Use
  Company Number: None

PATIENT
  Age: 80 Year
  Sex: Female
  Weight: 78.75 kg

DRUGS (15)
  1. NORTRIPTYLINE [Concomitant]
     Active Substance: NORTRIPTYLINE
  2. MAGNESIUM [Concomitant]
     Active Substance: MAGNESIUM
  3. AIMOVIG [Suspect]
     Active Substance: ERENUMAB-AOOE
     Indication: MIGRAINE
     Dosage: ?          QUANTITY:1 INJECTION(S);OTHER FREQUENCY:PER MONTH;OTHER ROUTE:INJECTED INTO ABDOMEN?
     Dates: start: 20180201, end: 20210115
  4. DILTIAZEM ER [Concomitant]
     Active Substance: DILTIAZEM
  5. ATENOLOL. [Concomitant]
     Active Substance: ATENOLOL
  6. PINDOLOL. [Concomitant]
     Active Substance: PINDOLOL
  7. ZOFRAN [Concomitant]
     Active Substance: ONDANSETRON HYDROCHLORIDE
  8. FAMOTADINE [Concomitant]
  9. VITAMIN D [Concomitant]
     Active Substance: VITAMIN D NOS
  10. GAVISCON [Concomitant]
     Active Substance: ALUMINUM HYDROXIDE\MAGNESIUM CARBONATE
  11. ASA [Concomitant]
     Active Substance: ASPIRIN
  12. FIORACET [Concomitant]
     Active Substance: ACETAMINOPHEN\BUTALBITAL\CAFFEINE
  13. TYLENOL [Concomitant]
     Active Substance: ACETAMINOPHEN
  14. RELPAX [Concomitant]
     Active Substance: ELETRIPTAN HYDROBROMIDE
  15. TUMS [Concomitant]
     Active Substance: CALCIUM CARBONATE

REACTIONS (2)
  - Therapeutic product effect decreased [None]
  - Alopecia [None]

NARRATIVE: CASE EVENT DATE: 20200801
